FAERS Safety Report 15562558 (Version 1)
Quarter: 2018Q4

REPORT INFORMATION
  Report Type: Other
  Country: None (occurrence: GR)
  Receive Date: 20181029
  Receipt Date: 20181029
  Transmission Date: 20190205
  Serious: Yes (Other)
  Sender: FDA-Public Use
  Company Number: GR-LABORATOIRE HRA PHARMA-2058179

PATIENT
  Age: 29 Year
  Sex: Female

DRUGS (1)
  1. ELLA [Suspect]
     Active Substance: ULIPRISTAL ACETATE
     Indication: POST COITAL CONTRACEPTION

REACTIONS (3)
  - Abortion spontaneous [None]
  - Unintended pregnancy [None]
  - Haemorrhage in pregnancy [None]
